FAERS Safety Report 4475226-1 (Version None)
Quarter: 2004Q4

REPORT INFORMATION
  Report Type: 
  Country: None (occurrence: None)
  Receive Date: 20041012
  Receipt Date: 20040927
  Transmission Date: 20050328
  Serious: Yes (Hospitalization, Other)
  Sender: FDA-Public Use
  Company Number: 2004235596SE

PATIENT
  Age: 82 Year
  Sex: Female

DRUGS (9)
  1. PREDNISOLONE [Suspect]
     Dosage: 5 MG, QD, ORAL
     Route: 048
     Dates: start: 20040506, end: 20040510
  2. TAVANIC (LEVOFLOXACIN)TABLET [Suspect]
     Indication: PYREXIA
     Dosage: 250 MG, QD, ORAL
     Route: 048
     Dates: start: 20040506, end: 20040513
  3. ZYLORIC [Concomitant]
  4. MOLLIPECT [Concomitant]
  5. LANACRIST [Concomitant]
  6. ZAROXOLYN [Concomitant]
  7. KALIUM RETARD [Concomitant]
  8. ASPIRIN [Concomitant]
  9. COMBIVENT [Concomitant]

REACTIONS (8)
  - ERYSIPELAS [None]
  - ERYTHEMA [None]
  - FEELING HOT [None]
  - MUSCLE RUPTURE [None]
  - OEDEMA PERIPHERAL [None]
  - PAIN IN EXTREMITY [None]
  - TENDON RUPTURE [None]
  - TENDONITIS [None]
